FAERS Safety Report 23891664 (Version 1)
Quarter: 2024Q2

REPORT INFORMATION
  Report Type: Spontaneous
  Country: US (occurrence: US)
  Receive Date: 20240524
  Receipt Date: 20240524
  Transmission Date: 20240716
  Serious: No
  Sender: FDA-Public Use
  Company Number: US-TERSERA THERAPEUTICS LLC-2023TRS005482

PATIENT

DRUGS (2)
  1. GOSERELIN [Suspect]
     Active Substance: GOSERELIN
     Indication: Prostate cancer
     Dosage: UNK, EVERY THREE MONTHS
     Route: 058
     Dates: start: 20170901, end: 20181201
  2. ZOLADEX [Suspect]
     Active Substance: GOSERELIN ACETATE
     Indication: Prostate cancer
     Dosage: UNK
     Route: 065

REACTIONS (3)
  - Injection site pain [Recovered/Resolved]
  - Product dose omission issue [Unknown]
  - Product supply issue [Unknown]
